FAERS Safety Report 21301682 (Version 2)
Quarter: 2022Q4

REPORT INFORMATION
  Report Type: Spontaneous
  Country: JP (occurrence: JP)
  Receive Date: 20220907
  Receipt Date: 20221019
  Transmission Date: 20230113
  Serious: Yes (Hospitalization)
  Sender: FDA-Public Use
  Company Number: JP-CHUGAI-2022034171

PATIENT
  Age: 9 Decade
  Sex: Male

DRUGS (1)
  1. HEMLIBRA [Suspect]
     Active Substance: EMICIZUMAB-KXWH
     Indication: Acquired haemophilia
     Route: 058
     Dates: end: 20220915

REACTIONS (2)
  - Pneumothorax [Recovered/Resolved]
  - Haemorrhage [Recovered/Resolved]
